FAERS Safety Report 8764639 (Version 1)
Quarter: 2012Q4

REPORT INFORMATION
  Report Type: Report from Study
  Country: US (occurrence: US)
  Receive Date: 20120831
  Receipt Date: 20120831
  Transmission Date: 20130627
  Serious: Yes (Hospitalization)
  Sender: FDA-Public Use
  Company Number: US-TEVA-356763USA

PATIENT
  Age: 58 Year
  Sex: Male
  Weight: 104.1 kg

DRUGS (10)
  1. TREANDA [Suspect]
     Indication: MULTIPLE MYELOMA
     Route: 042
     Dates: start: 20120823
  2. ETOPOSIDE [Suspect]
     Indication: MULTIPLE MYELOMA
     Route: 042
     Dates: start: 20120823
  3. DEXAMETHASONE [Suspect]
     Indication: MULTIPLE MYELOMA
     Route: 048
     Dates: start: 20120823
  4. GRANULOCYTE COLONY STIMULATING FACTOR 3 SPLICE VARIANT CONTAINING 177 AMINO ACIDS [Suspect]
     Indication: MULTIPLE MYELOMA
     Route: 058
     Dates: start: 20120827
  5. ASPIRIN [Concomitant]
     Dosage: 81 Milligram Daily;
     Route: 048
  6. AMLODIPINE [Concomitant]
     Dosage: 10 Milligram Daily;
     Route: 048
  7. LISINOPRIL [Concomitant]
     Dosage: 20 Milligram Daily;
     Route: 048
  8. METOPROLOL [Concomitant]
     Dosage: 100 Milligram Daily;
     Route: 048
  9. TAMSULOSIN [Concomitant]
  10. INSULIN GLARGINE [Concomitant]
     Dosage: 15-20 units Qhs

REACTIONS (1)
  - Atrial fibrillation [Not Recovered/Not Resolved]
